FAERS Safety Report 6364138-4 (Version None)
Quarter: 2009Q3

REPORT INFORMATION
  Report Type: 
  Country: None (occurrence: None)
  Receive Date: 20090919
  Receipt Date: 20090727
  Transmission Date: 20100115
  Serious: No
  Sender: FDA-Public Use
  Company Number: US-ABBOTT-09P-163-0583775-00

PATIENT
  Sex: Female
  Weight: 72.64 kg

DRUGS (6)
  1. HUMIRA [Suspect]
     Indication: RHEUMATOID ARTHRITIS
     Dates: start: 20090626
  2. HUMIRA [Suspect]
     Indication: CROHN'S DISEASE
  3. DEMEROL [Concomitant]
     Indication: MIGRAINE
  4. LORTAB [Concomitant]
     Indication: MIGRAINE
  5. LISINOPRIL [Concomitant]
     Indication: DRUG USE FOR UNKNOWN INDICATION
     Dosage: AS REQUIRED
  6. CLONIDINE [Concomitant]
     Indication: DRUG USE FOR UNKNOWN INDICATION

REACTIONS (5)
  - DRUG DOSE OMISSION [None]
  - FATIGUE [None]
  - HEADACHE [None]
  - MALAISE [None]
  - NAUSEA [None]
